FAERS Safety Report 6473427-4 (Version None)
Quarter: 2009Q4

REPORT INFORMATION
  Report Type: 
  Country: None (occurrence: None)
  Receive Date: 20091204
  Receipt Date: 20081014
  Transmission Date: 20100525
  Serious: Yes (Hospitalization)
  Sender: FDA-Public Use
  Company Number: NL-ELI_LILLY_AND_COMPANY-NL200810003761

PATIENT
  Sex: Male
  Weight: 80 kg

DRUGS (2)
  1. CYMBALTA [Suspect]
     Indication: DEPRESSED MOOD
     Dosage: 30 MG, DAILY (1/D)
     Route: 048
     Dates: start: 20080501
  2. ACENOCOUMAROL [Concomitant]
     Indication: THROMBOSIS
     Dosage: 1 MG, DAILY (1/D)
     Route: 048
     Dates: start: 19810101, end: 20080921

REACTIONS (1)
  - DUODENAL ULCER HAEMORRHAGE [None]
